FAERS Safety Report 8104390-8 (Version None)
Quarter: 2012Q1

REPORT INFORMATION
  Report Type: 
  Country: None (occurrence: None)
  Receive Date: 20120201
  Receipt Date: 20120123
  Transmission Date: 20120608
  Serious: Yes (Hospitalization, Other)
  Sender: FDA-Public Use
  Company Number: ES-JHP PHARMACEUTICALS, LLC-JHP201200042

PATIENT
  Age: 30 Year
  Sex: Female

DRUGS (4)
  1. OMEPRAZOLE [Concomitant]
  2. EPINEPHRINE [Suspect]
     Indication: ANAPHYLACTIC REACTION
     Dosage: 1:10,000
     Route: 042
  3. METHYLPREDNISOLONE [Concomitant]
     Indication: ANAPHYLACTIC REACTION
     Route: 042
  4. IBUPROFEN [Suspect]

REACTIONS (1)
  - MYOCARDIAL INFARCTION [None]
